FAERS Safety Report 24218298 (Version 1)
Quarter: 2024Q3

REPORT INFORMATION
  Report Type: Report from Study
  Country: EG (occurrence: None)
  Receive Date: 20240816
  Receipt Date: 20240816
  Transmission Date: 20241017
  Serious: Yes (Hospitalization, Other)
  Sender: ASTRAZENECA
  Company Number: 2024A133959

PATIENT
  Age: 23175 Day
  Sex: Female

DRUGS (2)
  1. IMFINZI [Suspect]
     Active Substance: DURVALUMAB
     Indication: Cholangiocarcinoma
     Route: 041
     Dates: start: 20240420
  2. CISPLATIN [Concomitant]
     Active Substance: CISPLATIN

REACTIONS (5)
  - Laboratory test abnormal [Unknown]
  - Renal impairment [Unknown]
  - Oedema peripheral [Unknown]
  - Haemoglobin decreased [Recovered/Resolved]
  - Hypoalbuminaemia [Unknown]

NARRATIVE: CASE EVENT DATE: 20240601
